FAERS Safety Report 17147225 (Version 3)
Quarter: 2020Q4

REPORT INFORMATION
  Report Type: Report from Study
  Country: CA (occurrence: CA)
  Receive Date: 20191212
  Receipt Date: 20201208
  Transmission Date: 20210113
  Serious: Yes (Other)
  Sender: FDA-Public Use
  Company Number: CA-GLAXOSMITHKLINE-CA2018GSK218941

PATIENT
  Age: 52 Year
  Sex: Female

DRUGS (3)
  1. ZENHALE [Suspect]
     Active Substance: FORMOTEROL FUMARATE\MOMETASONE FUROATE
     Indication: ASTHMA
     Dosage: UNK, BID, 200/5 MCG
     Route: 055
  2. MEPOLIZUMAB [Suspect]
     Active Substance: MEPOLIZUMAB
     Indication: ASTHMA
     Dosage: 100 MG, Z, 1 MONTH
     Route: 042
     Dates: start: 20180705
  3. PREDNISONE. [Suspect]
     Active Substance: PREDNISONE
     Indication: PRODUCT USED FOR UNKNOWN INDICATION
     Dosage: UNK

REACTIONS (5)
  - Asthma [Unknown]
  - Loss of personal independence in daily activities [Unknown]
  - Pneumonia [Unknown]
  - Wheezing [Unknown]
  - Dyspnoea [Unknown]

NARRATIVE: CASE EVENT DATE: 201908
